FAERS Safety Report 5107975-6 (Version None)
Quarter: 2006Q3

REPORT INFORMATION
  Report Type: 
  Country: None (occurrence: None)
  Receive Date: 20060919
  Receipt Date: 20060912
  Transmission Date: 20061208
  Serious: Yes (Life-Threatening)
  Sender: FDA-Public Use
  Company Number: ES-AVENTIS-200619554GDDC

PATIENT
  Age: 63 Year
  Sex: Male

DRUGS (6)
  1. LANTUS [Suspect]
     Indication: DIABETES MELLITUS
  2. AVANDIA [Suspect]
     Indication: DIABETES MELLITUS
     Route: 048
     Dates: start: 20050820, end: 20051216
  3. DIAMICRON [Suspect]
     Indication: DIABETES MELLITUS
  4. AMLODIPINO ALTER [Concomitant]
     Dates: start: 20050304
  5. GABAPENTINA [Concomitant]
     Dates: start: 20050127
  6. EPINITRIL [Concomitant]
     Dosage: DOSE: 10 MG/24 H
     Dates: start: 20041028

REACTIONS (4)
  - CARDIAC FAILURE [None]
  - HYPOGLYCAEMIA [None]
  - PULMONARY OEDEMA [None]
  - RHABDOMYOLYSIS [None]
